FAERS Safety Report 13554348 (Version 1)
Quarter: 2017Q2

REPORT INFORMATION
  Report Type: Report from Study
  Country: FR (occurrence: FR)
  Receive Date: 20170517
  Receipt Date: 20170517
  Transmission Date: 20170830
  Serious: Yes (Death, Other)
  Sender: FDA-Public Use
  Company Number: FR-PFIZER INC-2013028937

PATIENT
  Age: 8 Month
  Sex: Female
  Weight: 9.55 kg

DRUGS (2)
  1. ATGAM [Suspect]
     Active Substance: EQUINE THYMOCYTE IMMUNE GLOBULIN
     Indication: BONE MARROW FAILURE
     Dosage: 40 MG/KG/DAY
     Route: 042
     Dates: start: 20120702, end: 20120705
  2. CICLOSPORIN [Concomitant]
     Active Substance: CYCLOSPORINE
     Indication: BONE MARROW FAILURE
     Dosage: 5 MG/KG PER DAY IN TWO INTAKES
     Route: 048

REACTIONS (2)
  - Cerebral haemorrhage [Fatal]
  - Treatment failure [Fatal]

NARRATIVE: CASE EVENT DATE: 2012
